FAERS Safety Report 20974888 (Version 1)
Quarter: 2022Q2

REPORT INFORMATION
  Report Type: Spontaneous
  Country: CA (occurrence: CA)
  Receive Date: 20220617
  Receipt Date: 20220617
  Transmission Date: 20220720
  Serious: Yes (Hospitalization, Other)
  Sender: FDA-Public Use
  Company Number: CA-GSKCCFAMERS-Case-01405080_AE-80918

PATIENT

DRUGS (1)
  1. NUCALA [Suspect]
     Active Substance: MEPOLIZUMAB
     Indication: Asthma
     Dosage: UNK
     Route: 042

REACTIONS (6)
  - Cardiac arrest [Unknown]
  - Lung disorder [Unknown]
  - Amnesia [Unknown]
  - Aphasia [Unknown]
  - Hypoaesthesia [Unknown]
  - Gait disturbance [Unknown]
